FAERS Safety Report 13603466 (Version 1)
Quarter: 2017Q2

REPORT INFORMATION
  Report Type: Spontaneous
  Country: US (occurrence: US)
  Receive Date: 20170601
  Receipt Date: 20170601
  Transmission Date: 20170912
  Serious: No
  Sender: FDA-Public Use
  Company Number: US-OTSUKA-2016_029663

PATIENT
  Age: 85 Year
  Sex: Female

DRUGS (3)
  1. SAMSCA [Suspect]
     Dosage: UNK (ONE DOSE)
     Route: 065
     Dates: start: 20161217, end: 20161217
  2. LASIX [Concomitant]
     Indication: PRODUCT USED FOR UNKNOWN INDICATION
     Dosage: 40 MG, BID
     Route: 065
  3. SAMSCA [Suspect]
     Indication: BLOOD SODIUM DECREASED
     Dosage: 30 MG, DAILY
     Route: 048
     Dates: start: 201611, end: 20161202

REACTIONS (2)
  - Off label use [Unknown]
  - Inability to afford medication [Unknown]

NARRATIVE: CASE EVENT DATE: 201611
